FAERS Safety Report 5834649-6 (Version None)
Quarter: 2008Q3

REPORT INFORMATION
  Report Type: 
  Country: None (occurrence: None)
  Receive Date: 20080801
  Receipt Date: 20080716
  Transmission Date: 20090109
  Serious: Yes (Death)
  Sender: FDA-Public Use
  Company Number: 2008AL008409

PATIENT
  Age: 58 Year
  Sex: Male
  Weight: 77.1115 kg

DRUGS (5)
  1. DIGOXIN [Suspect]
     Indication: CARDIOMYOPATHY
     Dosage: 0.25 MG DAILY PO
     Route: 048
     Dates: start: 20080101, end: 20080408
  2. COREG [Concomitant]
  3. LASIX [Concomitant]
  4. COUMADIN [Concomitant]
  5. ALLOPURINOL [Concomitant]

REACTIONS (1)
  - PHARMACEUTICAL PRODUCT COMPLAINT [None]
